FAERS Safety Report 23705927 (Version 1)
Quarter: 2024Q2

REPORT INFORMATION
  Report Type: Spontaneous
  Country: US (occurrence: None)
  Receive Date: 20240403
  Receipt Date: 20240403
  Transmission Date: 20240716
  Serious: Yes (Hospitalization, Other)
  Sender: FDA-Public Use
  Company Number: None

PATIENT
  Age: 73 Year
  Sex: Female
  Weight: 82 kg

DRUGS (1)
  1. GAMMAKED [Suspect]
     Active Substance: HUMAN IMMUNOGLOBULIN G
     Indication: Stiff person syndrome
     Dosage: 120 G RRAM (S)  OVER 5 DAYS INTRAVENOUS
     Route: 042
     Dates: start: 20240119, end: 20240124

REACTIONS (10)
  - Malaise [None]
  - Cardiac disorder [None]
  - Dizziness [None]
  - Gait inability [None]
  - Disturbance in attention [None]
  - Therapy cessation [None]
  - Dehydration [None]
  - Muscle fatigue [None]
  - Arthralgia [None]
  - Influenza like illness [None]

NARRATIVE: CASE EVENT DATE: 20240131
